FAERS Safety Report 15940152 (Version 3)
Quarter: 2021Q1

REPORT INFORMATION
  Report Type: Spontaneous
  Country: US (occurrence: US)
  Receive Date: 20190208
  Receipt Date: 20210209
  Transmission Date: 20210419
  Serious: Yes (Disabling)
  Sender: FDA-Public Use
  Company Number: US-TEVA-2019-US-1007035

PATIENT
  Age: 38 Year
  Sex: Female

DRUGS (17)
  1. DOCETAXEL ACCORD [Suspect]
     Active Substance: DOCETAXEL
     Dosage: 80MG/4ML (20MG/ML) SOLN 4 ML VIAL; NUMBER OF CYCLES: 06; EVERY THREE WEEKS
     Route: 065
     Dates: start: 20150608, end: 20150608
  2. DOCETAXEL ACCORD [Suspect]
     Active Substance: DOCETAXEL
     Dosage: 20MG/ML (1ML) SOLN 4ML VIAL; NUMBER OF CYCLES: 06; EVERY THREE WEEKS
     Route: 065
     Dates: start: 20150721, end: 20150721
  3. DOCETAXEL ACCORD [Suspect]
     Active Substance: DOCETAXEL
     Dosage: 20MG/ML (1ML) SOLN 4ML VIAL; NUMBER OF CYCLES: 06; EVERY THREE WEEKS
     Route: 065
     Dates: start: 20150811, end: 20150811
  4. PARAPLATIN [Concomitant]
     Active Substance: CARBOPLATIN
     Dates: start: 20150518
  5. ALBUTEROL. [Concomitant]
     Active Substance: ALBUTEROL
     Dates: start: 2012
  6. CYMBALTA [Concomitant]
     Active Substance: DULOXETINE HYDROCHLORIDE
     Indication: PAIN
     Dates: start: 2012
  7. DOCETAXEL ACCORD [Suspect]
     Active Substance: DOCETAXEL
     Dosage: 20MG/ML (1ML) SOLN 4ML VIAL; NUMBER OF CYCLES: 06; EVERY THREE WEEKS
     Route: 065
     Dates: start: 20150901, end: 20150901
  8. PARAPLATIN [Concomitant]
     Active Substance: CARBOPLATIN
     Indication: BREAST CANCER FEMALE
     Dates: start: 20150427
  9. PARAPLATIN [Concomitant]
     Active Substance: CARBOPLATIN
     Dates: start: 20150811
  10. PERCOT [Concomitant]
     Indication: PAIN
     Dates: start: 2012
  11. PARAPLATIN [Concomitant]
     Active Substance: CARBOPLATIN
     Dates: start: 20150608
  12. AMBIEN [Concomitant]
     Active Substance: ZOLPIDEM TARTRATE
     Indication: PAIN
     Dates: start: 2012
  13. DOCETAXEL ACCORD [Suspect]
     Active Substance: DOCETAXEL
     Indication: BREAST CANCER FEMALE
     Dosage: 80MG/4ML (20MG/ML) SOLN 4 ML VIAL; NUMBER OF CYCLES: 06; EVERY THREE WEEKS
     Route: 065
     Dates: start: 20150427, end: 20150427
  14. DOCETAXEL ACCORD [Suspect]
     Active Substance: DOCETAXEL
     Dosage: 80MG/4ML (20MG/ML) SOLN 4 ML VIAL; NUMBER OF CYCLES: 06; EVERY THREE WEEKS
     Route: 065
     Dates: start: 20150518, end: 20150518
  15. PARAPLATIN [Concomitant]
     Active Substance: CARBOPLATIN
     Dates: start: 20150721
  16. PARAPLATIN [Concomitant]
     Active Substance: CARBOPLATIN
     Dates: start: 20150901
  17. TRAZODONE [Concomitant]
     Active Substance: TRAZODONE HYDROCHLORIDE
     Indication: PAIN
     Dates: start: 2012

REACTIONS (4)
  - Alopecia areata [Not Recovered/Not Resolved]
  - Madarosis [Not Recovered/Not Resolved]
  - Hair texture abnormal [Not Recovered/Not Resolved]
  - Hair colour changes [Not Recovered/Not Resolved]

NARRATIVE: CASE EVENT DATE: 201603
